FAERS Safety Report 19597493 (Version 3)
Quarter: 2022Q1

REPORT INFORMATION
  Report Type: Spontaneous
  Country: US (occurrence: US)
  Receive Date: 20210723
  Receipt Date: 20220324
  Transmission Date: 20220423
  Serious: No
  Sender: FDA-Public Use
  Company Number: NVSC2021US162629

PATIENT
  Age: 76 Year
  Sex: Female

DRUGS (8)
  1. ESTRADIOL [Suspect]
     Active Substance: ESTRADIOL
     Indication: Menopause
     Dosage: 0.025 UNK
     Route: 062
     Dates: start: 202004, end: 202004
  2. ESTRADIOL [Suspect]
     Active Substance: ESTRADIOL
     Dosage: 0.05 UNK
     Route: 062
     Dates: start: 202004, end: 202004
  3. VIVELLE-DOT [Suspect]
     Active Substance: ESTRADIOL
     Indication: Menopause
     Dosage: UNK
     Route: 065
  4. MINIVELLE [Suspect]
     Active Substance: ESTRADIOL
     Indication: Menopause
     Dosage: 0.1 UNK
     Route: 062
  5. DIETARY SUPPLEMENT [Suspect]
     Active Substance: DIETARY SUPPLEMENT
     Indication: Menopause
     Dosage: UNK
     Route: 065
  6. LEVONORGESTREL [Suspect]
     Active Substance: LEVONORGESTREL
     Indication: Menopause
     Dosage: UNK
     Route: 065
  7. SYNTHROID [Concomitant]
     Active Substance: LEVOTHYROXINE SODIUM
     Indication: Thyroid disorder
     Dosage: UNK
     Route: 048
  8. GABAPENTIN [Concomitant]
     Active Substance: GABAPENTIN
     Indication: Neuropathy peripheral
     Dosage: UNK
     Route: 048

REACTIONS (6)
  - Hot flush [Recovered/Resolved]
  - Diarrhoea [Recovered/Resolved]
  - Headache [Recovered/Resolved]
  - Nausea [Recovered/Resolved]
  - Drug ineffective [Recovered/Resolved]
  - Rash [Unknown]
